FAERS Safety Report 13093223 (Version 1)
Quarter: 2017Q1

REPORT INFORMATION
  Report Type: Spontaneous
  Country: US (occurrence: US)
  Receive Date: 20170106
  Receipt Date: 20170106
  Transmission Date: 20170428
  Serious: No
  Sender: FDA-Public Use
  Company Number: None

PATIENT
  Sex: Female
  Weight: 96.16 kg

DRUGS (1)
  1. METFORMIN [Suspect]
     Active Substance: METFORMIN HYDROCHLORIDE
     Indication: BLOOD GLUCOSE INCREASED
     Route: 048
     Dates: end: 20160820

REACTIONS (9)
  - Abdominal discomfort [None]
  - Flatulence [None]
  - Dyspnoea [None]
  - Pruritus [None]
  - Headache [None]
  - Hyperhidrosis [None]
  - Fatigue [None]
  - Chest discomfort [None]
  - Asthenia [None]
